FAERS Safety Report 8416390-9 (Version None)
Quarter: 2012Q2

REPORT INFORMATION
  Report Type: 
  Country: None (occurrence: None)
  Receive Date: 20120606
  Receipt Date: 20120529
  Transmission Date: 20120825
  Serious: Yes (Hospitalization)
  Sender: FDA-Public Use
  Company Number: JP-SANOFI-AVENTIS-2012SA039302

PATIENT

DRUGS (2)
  1. PLAVIX [Suspect]
     Dosage: MAINTENANCE DOSE
     Route: 065
  2. PLAVIX [Suspect]
     Dosage: LOADING DOSE
     Route: 065

REACTIONS (1)
  - CORONARY ARTERY STENOSIS [None]
